FAERS Safety Report 26000918 (Version 1)
Quarter: 2025Q4

REPORT INFORMATION
  Report Type: Spontaneous
  Country: US (occurrence: None)
  Receive Date: 20251105
  Receipt Date: 20251105
  Transmission Date: 20260118
  Serious: Yes (Other)
  Sender: FDA-CTU
  Company Number: None

PATIENT
  Sex: Male

DRUGS (11)
  1. POMALYST [Suspect]
     Active Substance: POMALIDOMIDE
     Indication: Plasma cell myeloma
     Route: 048
     Dates: start: 20250221
  2. ACYCLOVIR CAP 200MG [Concomitant]
  3. ALBUTEROL AER HFA [Concomitant]
  4. AMLODIPINE [Concomitant]
     Active Substance: AMLODIPINE BESYLATE
  5. AMOXICILLIN [Concomitant]
     Active Substance: AMOXICILLIN
  6. ASPIRIN LOW TAB 81MG EC [Concomitant]
  7. ATORVASTATIN TAB 10MG [Concomitant]
  8. BUPROPION TAB 150MG SR [Concomitant]
  9. DEXAMETHASON TAB 0.75MG [Concomitant]
  10. ESCITALOPRAM [Concomitant]
     Active Substance: ESCITALOPRAM OXALATE
  11. FLONASE ALGY SPR 50MCG [Concomitant]

REACTIONS (1)
  - Surgery [None]
